FAERS Safety Report 13342330 (Version 3)
Quarter: 2017Q2

REPORT INFORMATION
  Report Type: Spontaneous
  Country: CA (occurrence: CA)
  Receive Date: 20170316
  Receipt Date: 20170403
  Transmission Date: 20170830
  Serious: Yes (Hospitalization)
  Sender: FDA-Public Use
  Company Number: CA-PFIZER INC-2017061067

PATIENT
  Age: 66 Year
  Sex: Female

DRUGS (8)
  1. SYNTHROID [Concomitant]
     Active Substance: LEVOTHYROXINE SODIUM
     Dosage: 1.25 UG, DAILY
  2. PREVACID [Concomitant]
     Active Substance: LANSOPRAZOLE
     Dosage: 30 MG, 1 CAP 2X/DAY
  3. IBRANCE [Suspect]
     Active Substance: PALBOCICLIB
     Dosage: 1 25MG, DAILY (FOR 21 DAYS AND 7 DAYS OFF)
     Route: 048
     Dates: start: 201702, end: 201703
  4. LETROZOLE. [Suspect]
     Active Substance: LETROZOLE
     Dosage: UNK, THREE DAYS PER WEEK
  5. LYRICA [Concomitant]
     Active Substance: PREGABALIN
     Dosage: 50 MG, 4X/DAY
  6. METOPROLOL. [Concomitant]
     Active Substance: METOPROLOL
     Dosage: 50 MG, 2X/DAY
  7. METONIA [Concomitant]
     Active Substance: METOCLOPRAMIDE
     Dosage: 10 MG, 1 TAB EVERY 6 HOURS
  8. MORPHINE [Concomitant]
     Active Substance: MORPHINE
     Dosage: 1 MG, 1 TO 4 TEASPOONS EVERY 4 HOURS

REACTIONS (7)
  - Vomiting [Not Recovered/Not Resolved]
  - Malaise [Unknown]
  - Neck pain [Unknown]
  - Abdominal pain upper [Unknown]
  - Nausea [Unknown]
  - Headache [Unknown]
  - Influenza [Unknown]

NARRATIVE: CASE EVENT DATE: 2017
